FAERS Safety Report 22610573 (Version 8)
Quarter: 2024Q1

REPORT INFORMATION
  Report Type: Report from Study
  Country: US (occurrence: US)
  Receive Date: 20230616
  Receipt Date: 20240111
  Transmission Date: 20240409
  Serious: Yes (Hospitalization, Other)
  Sender: FDA-Public Use
  Company Number: US-002147023-NVSC2023US133674

PATIENT
  Age: 47 Year
  Sex: Male

DRUGS (1)
  1. KESIMPTA [Suspect]
     Active Substance: OFATUMUMAB
     Indication: Multiple sclerosis
     Dosage: 20 MG, QMO
     Route: 058

REACTIONS (9)
  - Sepsis [Unknown]
  - Pyrexia [Unknown]
  - Seizure [Unknown]
  - Muscular weakness [Recovering/Resolving]
  - Gait disturbance [Recovered/Resolved]
  - Weight bearing difficulty [Unknown]
  - Headache [Recovered/Resolved]
  - Limb discomfort [Recovering/Resolving]
  - Product dose omission issue [Unknown]

NARRATIVE: CASE EVENT DATE: 20230608
